FAERS Safety Report 23061259 (Version 3)
Quarter: 2024Q2

REPORT INFORMATION
  Report Type: Spontaneous
  Country: JP (occurrence: JP)
  Receive Date: 20231013
  Receipt Date: 20240606
  Transmission Date: 20240716
  Serious: No
  Sender: FDA-Public Use
  Company Number: JP-KISSEI-TV20230560_P_1

PATIENT
  Age: 78 Year
  Sex: Female

DRUGS (16)
  1. TAVNEOS [Suspect]
     Active Substance: AVACOPAN
     Indication: Microscopic polyangiitis
     Dosage: UNK
     Route: 048
  2. TAVNEOS [Suspect]
     Active Substance: AVACOPAN
     Dosage: RESTARTED AT A LOW DOSE
     Route: 048
  3. TAVNEOS [Suspect]
     Active Substance: AVACOPAN
     Dosage: UNK
     Route: 048
  4. PREDNISOLONE [Concomitant]
     Active Substance: PREDNISOLONE
     Indication: Microscopic polyangiitis
     Dosage: PERORAL MEDICINE
     Route: 048
  5. PREDNISOLONE [Concomitant]
     Active Substance: PREDNISOLONE
     Dosage: PERORAL MEDICINE
     Route: 048
  6. PREDNISOLONE [Concomitant]
     Active Substance: PREDNISOLONE
     Dosage: PERORAL MEDICINE
     Route: 048
  7. PREDNISOLONE [Concomitant]
     Active Substance: PREDNISOLONE
     Dosage: PERORAL MEDICINE
     Route: 048
  8. PREDNISOLONE [Concomitant]
     Active Substance: PREDNISOLONE
     Dosage: PERORAL MEDICINE
     Route: 048
  9. PREDNISOLONE [Concomitant]
     Active Substance: PREDNISOLONE
     Dosage: PERORAL MEDICINE
     Route: 048
  10. PREDNISOLONE [Concomitant]
     Active Substance: PREDNISOLONE
     Dosage: PERORAL MEDICINE
     Route: 048
  11. PREDNISOLONE [Concomitant]
     Active Substance: PREDNISOLONE
     Dosage: PERORAL MEDICINE
     Route: 048
  12. PREDNISOLONE [Concomitant]
     Active Substance: PREDNISOLONE
     Dosage: PERORAL MEDICINE
     Route: 048
  13. PREDNISOLONE [Concomitant]
     Active Substance: PREDNISOLONE
     Dosage: PERORAL MEDICINE
     Route: 048
  14. PREDNISOLONE [Concomitant]
     Active Substance: PREDNISOLONE
     Dosage: PERORAL MEDICINE
     Route: 048
  15. PREDNISOLONE [Concomitant]
     Active Substance: PREDNISOLONE
     Dosage: PERORAL MEDICINE
     Route: 048
  16. PREDNISOLONE [Concomitant]
     Active Substance: PREDNISOLONE
     Dosage: PERORAL MEDICINE
     Route: 048

REACTIONS (2)
  - Urinary tract infection [Recovering/Resolving]
  - Underdose [Unknown]
